FAERS Safety Report 9683413 (Version 1)
Quarter: 2013Q4

REPORT INFORMATION
  Report Type: Spontaneous
  Country: US (occurrence: US)
  Receive Date: 20131112
  Receipt Date: 20131112
  Transmission Date: 20140711
  Serious: No
  Sender: FDA-Public Use
  Company Number: US-009507513-1310USA012592

PATIENT
  Age: 25 Year
  Sex: Female

DRUGS (1)
  1. IMPLANON [Suspect]
     Indication: CONTRACEPTION
     Dosage: UNK
     Route: 059
     Dates: start: 20130422

REACTIONS (5)
  - Abnormal loss of weight [Unknown]
  - Metrorrhagia [Recovered/Resolved]
  - Menorrhagia [Recovered/Resolved]
  - Metrorrhagia [Unknown]
  - Menorrhagia [Unknown]
